FAERS Safety Report 16003799 (Version 1)
Quarter: 2019Q1

REPORT INFORMATION
  Report Type: Spontaneous
  Country: ES (occurrence: ES)
  Receive Date: 20190226
  Receipt Date: 20190226
  Transmission Date: 20190418
  Serious: Yes (Hospitalization, Other)
  Sender: FDA-Public Use
  Company Number: ES-ACCORD-109014

PATIENT
  Age: 71 Year
  Sex: Male

DRUGS (12)
  1. HYDROXYZINE [Concomitant]
     Active Substance: HYDROXYZINE HYDROCHLORIDE
     Indication: PSORIASIS
     Dosage: 1-0-1, STRENGTH: 25 MG
     Route: 048
     Dates: start: 20171114
  2. HEMOVAS 400 [Concomitant]
     Indication: VASCULITIC ULCER
     Route: 048
     Dates: start: 201711
  3. SUTRIL NEO [Concomitant]
     Indication: TRANSURETHRAL BLADDER RESECTION
     Dosage: STRENGTH: 10 MG
     Route: 048
     Dates: start: 20180531
  4. COLCHICINE. [Interacting]
     Active Substance: COLCHICINE
     Indication: GOUT
     Dosage: STRENGTH: 1 MG, 1/24H
     Route: 048
     Dates: start: 201611
  5. TOVIAZ [Concomitant]
     Active Substance: FESOTERODINE FUMARATE
     Dosage: STRENGTH: 8 MG
     Dates: start: 20180620
  6. DUROGESIC 25 [Concomitant]
     Route: 062
     Dates: start: 20180517
  7. ALLOPURINOL. [Suspect]
     Active Substance: ALLOPURINOL
     Indication: GOUT
     Dosage: STARTED TREATMENT WITH 150 MG A DAY AND IT IS NOT KNOWN AT WHAT TIME IT?PASSED 100 MG DAY
     Route: 048
     Dates: start: 201705
  8. AZATHIOPRINE. [Interacting]
     Active Substance: AZATHIOPRINE
     Indication: PSORIASIS
     Dosage: 0-2-0-0, 2/24H, STRENGTH: 50 MG
     Route: 048
     Dates: start: 20180620
  9. ARCOXIA [Concomitant]
     Active Substance: ETORICOXIB
     Dosage: STERNGTH: 90 MG
     Route: 048
  10. OMEPRAZOL 20 [Concomitant]
     Active Substance: OMEPRAZOLE
     Route: 048
     Dates: start: 2017
  11. CLOVATE POMADA [Concomitant]
     Indication: PSORIASIS
     Route: 003
     Dates: start: 20080804
  12. ADIRO [Concomitant]
     Active Substance: ASPIRIN
     Indication: VASCULITIC ULCER
     Dosage: STRENGTH: 100 MG
     Route: 048
     Dates: start: 201711

REACTIONS (5)
  - Septic shock [Unknown]
  - Diarrhoea [Unknown]
  - Nausea [Unknown]
  - Pancytopenia [Unknown]
  - Drug interaction [Unknown]

NARRATIVE: CASE EVENT DATE: 201807
